FAERS Safety Report 23698008 (Version 1)
Quarter: 2024Q2

REPORT INFORMATION
  Report Type: Spontaneous
  Country: US (occurrence: US)
  Receive Date: 20240402
  Receipt Date: 20240402
  Transmission Date: 20240715
  Serious: No
  Sender: FDA-Public Use
  Company Number: US-ARBOR PHARMACEUTICALS, LLC-US-2023ARB003050

PATIENT
  Sex: Female

DRUGS (1)
  1. EDARBI [Suspect]
     Active Substance: AZILSARTAN KAMEDOXOMIL
     Indication: Product used for unknown indication
     Dosage: HALF A TABLET

REACTIONS (4)
  - Blood pressure increased [Not Recovered/Not Resolved]
  - Wrong technique in product usage process [Unknown]
  - Product prescribing error [Unknown]
  - Product availability issue [Unknown]
